FAERS Safety Report 4318398-1 (Version None)
Quarter: 2004Q1

REPORT INFORMATION
  Report Type: 
  Country: None (occurrence: None)
  Receive Date: 20040315
  Receipt Date: 20040304
  Transmission Date: 20041129
  Serious: Yes (Death)
  Sender: FDA-Public Use
  Company Number: NL-JNJFOC-20040301214

PATIENT
  Age: 80 Year
  Sex: Male
  Weight: 54 kg

DRUGS (6)
  1. GALANTAMINE (GALANTAMINE) [Suspect]
     Indication: COGNITIVE DISORDER
     Dosage: 24 MG, ORAL
     Route: 048
     Dates: start: 20031204, end: 20031223
  2. PIROXICAM [Concomitant]
  3. NANDROLON (NANDROLONE) [Concomitant]
  4. NEURONTIN [Concomitant]
  5. PERMAX [Concomitant]
  6. BETAHISTIDINE (BETAHISTINE) [Concomitant]

REACTIONS (2)
  - CIRCULATORY COLLAPSE [None]
  - MYOCARDIAL INFARCTION [None]
